FAERS Safety Report 9291525 (Version 1)
Quarter: 2013Q2

REPORT INFORMATION
  Report Type: Spontaneous
  Country: US (occurrence: US)
  Receive Date: 20130515
  Receipt Date: 20130515
  Transmission Date: 20140414
  Serious: Yes (Disabling, Other)
  Sender: FDA-Public Use
  Company Number: US-GLAXOSMITHKLINE-A1022666A

PATIENT
  Age: 72 Year
  Sex: Male

DRUGS (5)
  1. REQUIP [Suspect]
     Indication: PARKINSON^S DISEASE
     Dosage: 4MG THREE TIMES PER DAY
     Route: 048
     Dates: start: 2010
  2. AMANTADINE [Concomitant]
  3. TAMSULOSIN HYDROCHLORIDE [Concomitant]
  4. CITALOPRAM [Concomitant]
  5. NEURONTIN [Concomitant]

REACTIONS (4)
  - Abasia [Not Recovered/Not Resolved]
  - Local swelling [Not Recovered/Not Resolved]
  - Peripheral coldness [Not Recovered/Not Resolved]
  - General physical health deterioration [Unknown]
